FAERS Safety Report 14477195 (Version 1)
Quarter: 2018Q1

REPORT INFORMATION
  Report Type: Report from Study
  Country: US (occurrence: US)
  Receive Date: 20180201
  Receipt Date: 20180201
  Transmission Date: 20180509
  Serious: No
  Sender: FDA-Public Use
  Company Number: US-EXELIXIS-CABO-17010411

PATIENT
  Sex: Male
  Weight: 85.26 kg

DRUGS (11)
  1. BACLOFEN. [Concomitant]
     Active Substance: BACLOFEN
  2. DULOXETINE. [Concomitant]
     Active Substance: DULOXETINE
  3. MULTIVITAMIN [Concomitant]
     Active Substance: VITAMINS
  4. LIDOCAINE. [Concomitant]
     Active Substance: LIDOCAINE
  5. FLAXSEED [Concomitant]
     Active Substance: FLAX SEED
  6. VITAMIN D [Concomitant]
     Active Substance: CHOLECALCIFEROL
  7. METHOCARBAMOL. [Concomitant]
     Active Substance: METHOCARBAMOL
  8. CABOMETYX [Suspect]
     Active Substance: CABOZANTINIB S-MALATE
     Indication: RENAL CANCER
     Dosage: 60 MG, QD
     Route: 048
  9. LOPERAMIDE [Concomitant]
     Active Substance: LOPERAMIDE
  10. MELOXICAM. [Concomitant]
     Active Substance: MELOXICAM
  11. FENTANYL. [Concomitant]
     Active Substance: FENTANYL

REACTIONS (1)
  - Tooth abscess [Recovered/Resolved]
